FAERS Safety Report 7802029-X (Version None)
Quarter: 2011Q4

REPORT INFORMATION
  Report Type: 
  Country: None (occurrence: None)
  Receive Date: 20111007
  Receipt Date: 20111003
  Transmission Date: 20120403
  Serious: Yes (Other)
  Sender: FDA-Public Use
  Company Number: PHEH2011US01552

PATIENT
  Sex: Male
  Weight: 56 kg

DRUGS (6)
  1. OMEPRAZOLE [Concomitant]
     Dosage: UNK UKN, QD
     Route: 048
  2. EXJADE [Suspect]
     Indication: BLOOD IRON INCREASED
     Dosage: 500 MG, QD
     Route: 048
     Dates: start: 20110801
  3. EXJADE [Suspect]
     Indication: ANAEMIA OF CHRONIC DISEASE
     Dosage: 1000 MG, DAILY
     Route: 048
     Dates: start: 20110622
  4. PHENERGAN HCL [Concomitant]
     Dosage: UNK UKN, PRN
     Route: 048
  5. CARDURA [Concomitant]
     Dosage: UNK UKN, QD
     Route: 048
  6. MEGACE [Concomitant]
     Dosage: 1 TSP, BID
     Route: 048

REACTIONS (8)
  - BLOOD TEST ABNORMAL [None]
  - FATIGUE [None]
  - ASTHENIA [None]
  - DYSPNOEA [None]
  - VISUAL IMPAIRMENT [None]
  - HEARING IMPAIRED [None]
  - DIARRHOEA [None]
  - POLLAKIURIA [None]
